FAERS Safety Report 15967393 (Version 12)
Quarter: 2022Q1

REPORT INFORMATION
  Report Type: Spontaneous
  Country: US (occurrence: US)
  Receive Date: 20190215
  Receipt Date: 20220129
  Transmission Date: 20220423
  Serious: Yes (Hospitalization, Other)
  Sender: FDA-Public Use
  Company Number: US-SA-2019SA042012

PATIENT
  Age: 71 Year
  Sex: Female

DRUGS (2)
  1. DUPIXENT [Suspect]
     Active Substance: DUPILUMAB
     Indication: Dermatitis atopic
     Dosage: 600 MG, 1X
     Route: 058
     Dates: start: 201901, end: 201901
  2. DUPIXENT [Suspect]
     Active Substance: DUPILUMAB
     Indication: Type 2 diabetes mellitus
     Dosage: 300 MG, QOW
     Route: 058
     Dates: start: 201901, end: 202108

REACTIONS (15)
  - Haematochezia [Unknown]
  - Urinary tract infection [Unknown]
  - Upper limb fracture [Unknown]
  - Ocular hyperaemia [Unknown]
  - Eye discharge [Unknown]
  - Eye pain [Unknown]
  - Pruritus [Unknown]
  - Scratch [Unknown]
  - Pain of skin [Unknown]
  - Sinusitis [Unknown]
  - Fungal infection [Unknown]
  - Illness [Unknown]
  - Eye pruritus [Unknown]
  - Product use in unapproved indication [Unknown]
  - Dermatitis atopic [Unknown]

NARRATIVE: CASE EVENT DATE: 20191001
